FAERS Safety Report 8087775-8 (Version None)
Quarter: 2012Q1

REPORT INFORMATION
  Report Type: 
  Country: None (occurrence: None)
  Receive Date: 20120128
  Receipt Date: 20110607
  Transmission Date: 20120608
  Serious: No
  Sender: FDA-Public Use
  Company Number: US-ABBOTT-11P-163-0730403-00

PATIENT
  Sex: Male

DRUGS (2)
  1. HUMIRA [Suspect]
     Indication: PSORIASIS
     Dates: start: 20110401, end: 20110401
  2. LAMISIL [Suspect]
     Indication: PSORIASIS
     Route: 048
     Dates: start: 20100401

REACTIONS (3)
  - PSORIASIS [None]
  - DISCOMFORT [None]
  - RASH GENERALISED [None]
